FAERS Safety Report 22593786 (Version 1)
Quarter: 2023Q2

REPORT INFORMATION
  Report Type: Report from Study
  Country: DE (occurrence: DE)
  Receive Date: 20230613
  Receipt Date: 20230613
  Transmission Date: 20230722
  Serious: Yes (Hospitalization)
  Sender: FDA-Public Use
  Company Number: DE-SHIRE-ALL1-2013-04474

PATIENT
  Age: 6 Year
  Sex: Male
  Weight: 28 kg

DRUGS (11)
  1. IDURSULFASE [Suspect]
     Active Substance: IDURSULFASE
     Indication: Mucopolysaccharidosis II
     Dosage: 0.56 MILLIGRAM/KILOGRAM
     Route: 042
     Dates: start: 20090216
  2. IDURSULFASE [Suspect]
     Active Substance: IDURSULFASE
     Dosage: 0.72 MILLIGRAM/KILOGRAM, 1/WEEK
     Route: 042
     Dates: start: 20111017
  3. DIMETHINDENE [Concomitant]
     Active Substance: DIMETHINDENE
     Indication: Premedication
     Dosage: 7 GTT DROPS
     Route: 048
     Dates: start: 2011, end: 20110610
  4. DIMETHINDENE [Concomitant]
     Active Substance: DIMETHINDENE
     Dosage: 2 MILLIGRAM
     Route: 042
     Dates: start: 2011, end: 2011
  5. DIMETHINDENE [Concomitant]
     Active Substance: DIMETHINDENE
     Dosage: UNK MILLIGRAM
     Route: 042
     Dates: end: 2011
  6. CLEMASTINE [Concomitant]
     Active Substance: CLEMASTINE
     Indication: Premedication
     Dosage: 2 MILLIGRAM
     Route: 042
     Dates: end: 2011
  7. CLEMASTINE [Concomitant]
     Active Substance: CLEMASTINE
     Dosage: UNK
     Route: 042
     Dates: start: 2011
  8. PREDNISOLONE [Concomitant]
     Active Substance: PREDNISOLONE
     Indication: Premedication
     Dosage: 100 MILLIGRAM
     Route: 042
     Dates: end: 2011
  9. PREDNISOLONE [Concomitant]
     Active Substance: PREDNISOLONE
     Dosage: 25 MILLIGRAM
     Route: 042
     Dates: start: 20090901, end: 2010
  10. PREDNISOLONE [Concomitant]
     Active Substance: PREDNISOLONE
     Dosage: UNK
     Route: 042
     Dates: start: 2010, end: 2010
  11. RAMIPRIL [Concomitant]
     Active Substance: RAMIPRIL
     Indication: Mitral valve incompetence
     Dosage: UNK
     Route: 048
     Dates: start: 20120426

REACTIONS (1)
  - Mucopolysaccharidosis II [Recovered/Resolved]

NARRATIVE: CASE EVENT DATE: 20111109
